FAERS Safety Report 11875290 (Version 1)
Quarter: 2015Q4

REPORT INFORMATION
  Report Type: Spontaneous
  Country: JP (occurrence: JP)
  Receive Date: 20151229
  Receipt Date: 20151229
  Transmission Date: 20160305
  Serious: Yes (Disabling, Other)
  Sender: FDA-Public Use
  Company Number: JP-ELI_LILLY_AND_COMPANY-JP201512007963

PATIENT
  Age: 56 Year

DRUGS (1)
  1. ZYPREXA [Suspect]
     Active Substance: OLANZAPINE
     Indication: PRODUCT USED FOR UNKNOWN INDICATION
     Dosage: UNK
     Route: 048
     Dates: start: 201210, end: 201210

REACTIONS (2)
  - Neuroleptic malignant syndrome [Unknown]
  - Cerebellar ataxia [Unknown]

NARRATIVE: CASE EVENT DATE: 201210
